FAERS Safety Report 4804477-9 (Version None)
Quarter: 2005Q4

REPORT INFORMATION
  Report Type: 
  Country: None (occurrence: None)
  Receive Date: 20051018
  Receipt Date: 20051018
  Transmission Date: 20060501
  Serious: Yes (Life-Threatening, Hospitalization)
  Sender: FDA-Public Use
  Company Number: None

PATIENT
  Age: 71 Year
  Sex: Male
  Weight: 119.296 kg

DRUGS (2)
  1. ZOCOR [Suspect]
     Indication: CORONARY ARTERY DISEASE
     Dosage: 80 MG HS PO
     Route: 048
  2. LOPID [Suspect]
     Indication: DIABETES MELLITUS
     Dosage: 600 MG BID PO
     Route: 048

REACTIONS (2)
  - CHROMATURIA [None]
  - MYALGIA [None]
